FAERS Safety Report 8603982 (Version 4)
Quarter: 2013Q2

REPORT INFORMATION
  Report Type: Spontaneous
  Country: US (occurrence: US)
  Receive Date: 20120608
  Receipt Date: 20130621
  Transmission Date: 20140414
  Serious: Yes (Hospitalization)
  Sender: FDA-Public Use
  Company Number: US-BIOGENIDEC-2012BI019887

PATIENT
  Age: 61 Year
  Sex: Female
  Weight: 59 kg

DRUGS (15)
  1. AVONEX [Suspect]
     Indication: MULTIPLE SCLEROSIS
     Route: 030
     Dates: start: 20080801, end: 20090501
  2. AVONEX [Suspect]
     Indication: MULTIPLE SCLEROSIS
     Route: 030
     Dates: start: 20110328
  3. AVONEX [Suspect]
     Indication: MULTIPLE SCLEROSIS
     Route: 030
     Dates: start: 20130612
  4. AMBIEN [Concomitant]
     Route: 048
  5. LASIX [Concomitant]
     Route: 048
  6. LISINOPRIL [Concomitant]
     Route: 048
  7. NEURONTIN [Concomitant]
     Route: 048
  8. CYMBALTA [Concomitant]
     Route: 048
  9. TOPROL XL [Concomitant]
     Route: 048
  10. PREMPRO [Concomitant]
     Route: 048
  11. CENTRUM SILVER [Concomitant]
     Route: 048
  12. ASPIRIN [Concomitant]
     Route: 048
  13. ADVAIR [Concomitant]
  14. HYDROCODONE-ACETAMINOPHEN [Concomitant]
     Route: 048
  15. AMOXICILLIN [Concomitant]
     Route: 048

REACTIONS (10)
  - Aortic valve stenosis [Recovered/Resolved]
  - Urinary tract infection [Unknown]
  - Sepsis [Unknown]
  - Aspiration [Unknown]
  - Sedation [Unknown]
  - Hypertension [Unknown]
  - Ventricular tachycardia [Unknown]
  - Hysterosalpingo-oophorectomy [Unknown]
  - Hypotension [Unknown]
  - Alopecia [Unknown]
